FAERS Safety Report 9581965 (Version 1)
Quarter: 2013Q4

REPORT INFORMATION
  Report Type: Spontaneous
  Country: SE (occurrence: SE)
  Receive Date: 20131002
  Receipt Date: 20131002
  Transmission Date: 20140711
  Serious: Yes (Other)
  Sender: FDA-Public Use
  Company Number: SE-ACTAVIS-2013-17532

PATIENT
  Sex: Female

DRUGS (3)
  1. ANASTROZOLE (UNKNOWN) [Suspect]
     Indication: BREAST CANCER FEMALE
     Dosage: 1 DF, DAILY
     Route: 065
     Dates: start: 20130531
  2. INOLAXOL                           /00561901/ [Concomitant]
     Indication: PRODUCT USED FOR UNKNOWN INDICATION
     Dosage: UNK
     Route: 065
  3. OMEPRAZOL                          /00661201/ [Concomitant]
     Indication: HIATUS HERNIA
     Dosage: UNK
     Route: 065

REACTIONS (4)
  - Swollen tongue [Not Recovered/Not Resolved]
  - Oedema mouth [Not Recovered/Not Resolved]
  - Dysgeusia [Not Recovered/Not Resolved]
  - Decreased appetite [Not Recovered/Not Resolved]
